FAERS Safety Report 4608895-3 (Version None)
Quarter: 2005Q1

REPORT INFORMATION
  Report Type: 
  Country: None (occurrence: None)
  Receive Date: 20050309
  Receipt Date: 20050224
  Transmission Date: 20050727
  Serious: Yes (Other)
  Sender: FDA-Public Use
  Company Number: 2005038092

PATIENT
  Age: 13 Year
  Sex: Male

DRUGS (6)
  1. ATARAX [Suspect]
     Indication: ANXIETY
     Dosage: 25 MG, INTRAVENOUS
     Route: 042
     Dates: start: 20050124, end: 20050124
  2. ATROPINE [Concomitant]
  3. PENTAZOCINE LACTATE [Concomitant]
  4. KETAMINE HCL [Concomitant]
  5. LIDOCAINE HYDROCHLORIDE [Concomitant]
  6. MIDAZOLAM HCL [Concomitant]

REACTIONS (2)
  - LARYNGEAL DYSPNOEA [None]
  - LARYNGEAL OEDEMA [None]
